FAERS Safety Report 12298644 (Version 2)
Quarter: 2016Q2

REPORT INFORMATION
  Report Type: Report from Study
  Country: US (occurrence: US)
  Receive Date: 20160425
  Receipt Date: 20160606
  Transmission Date: 20160815
  Serious: Yes (Hospitalization, Other)
  Sender: FDA-Public Use
  Company Number: US-GILEAD-2016-0209827

PATIENT
  Age: 42 Year
  Sex: Female

DRUGS (1)
  1. AMBRISENTAN [Suspect]
     Active Substance: AMBRISENTAN
     Indication: PRODUCT USED FOR UNKNOWN INDICATION
     Dosage: 5 MG, UNK
     Route: 065
     Dates: start: 20141208

REACTIONS (8)
  - Gastric haemorrhage [Unknown]
  - Ovarian cancer [Unknown]
  - Wound dehiscence [Unknown]
  - Unresponsive to stimuli [Unknown]
  - Cerebrovascular accident [Unknown]
  - Malignant neoplasm of unknown primary site [Unknown]
  - Pneumonia [Unknown]
  - Incision site infection [Unknown]
